FAERS Safety Report 9049776 (Version 2)
Quarter: 2013Q3

REPORT INFORMATION
  Report Type: Spontaneous
  Country: US (occurrence: US)
  Receive Date: 20130205
  Receipt Date: 20130925
  Transmission Date: 20140515
  Serious: Yes (Hospitalization)
  Sender: FDA-Public Use
  Company Number: US-BAYER-2013-013944

PATIENT
  Age: 35 Year
  Sex: Female
  Weight: 74.83 kg

DRUGS (14)
  1. YAZ [Suspect]
     Indication: PREMENSTRUAL DYSPHORIC DISORDER
     Dosage: UNK
     Dates: start: 20081211, end: 20101210
  2. YAZ [Suspect]
     Indication: PREMENSTRUAL DYSPHORIC DISORDER
     Dosage: UNK
     Dates: start: 20081211, end: 20101210
  3. METFORMIN [Concomitant]
     Dosage: UNK
     Dates: start: 20101207
  4. TYLENOL [PARACETAMOL] [Concomitant]
  5. ORAL CONTRACEPTIVE NOS [Concomitant]
  6. ECOTRIN [Concomitant]
  7. MULTIVITAMIN [Concomitant]
  8. AIRBRON [Concomitant]
  9. IBUPROFEN [IBUPROFEN] [Concomitant]
     Dosage: UNK
     Dates: start: 20100926
  10. CEPHALEXIN [Concomitant]
     Dosage: UNK
     Dates: start: 20100926
  11. LODINE [Concomitant]
     Dosage: UNK
     Dates: start: 20101006
  12. DIFLUCAN [Concomitant]
     Dosage: UNK
     Dates: start: 20101006
  13. BENZONATATE [Concomitant]
     Dosage: UNK
     Dates: start: 20101112
  14. GUAIFENESIN W/DEXTROMETHORPHAN [Concomitant]
     Dosage: UNK
     Dates: start: 20101112

REACTIONS (9)
  - Cerebrovascular accident [None]
  - Injury [None]
  - Pain [None]
  - Emotional distress [None]
  - General physical health deterioration [None]
  - Anxiety [None]
  - Pain [None]
  - Hemianopia [None]
  - Blindness [None]
